FAERS Safety Report 10094873 (Version 1)
Quarter: 2014Q2

REPORT INFORMATION
  Report Type: Spontaneous
  Country: AU (occurrence: AU)
  Receive Date: 20140422
  Receipt Date: 20140422
  Transmission Date: 20141212
  Serious: Yes (Other)
  Sender: FDA-Public Use
  Company Number: AU-SA-2014SA045342

PATIENT
  Sex: Male

DRUGS (1)
  1. LASIX [Suspect]
     Indication: PRODUCT USED FOR UNKNOWN INDICATION
     Dosage: FREQUENCY: 5 TIMES PER WEEK
     Route: 065

REACTIONS (24)
  - Deafness [Unknown]
  - Hyperhidrosis [Unknown]
  - Dry mouth [Unknown]
  - Thirst [Unknown]
  - Weight decreased [Unknown]
  - Muscular weakness [Unknown]
  - Muscle spasms [Unknown]
  - Restlessness [Unknown]
  - Somnolence [Unknown]
  - Dizziness [Unknown]
  - Headache [Unknown]
  - Visual impairment [Unknown]
  - Confusional state [Unknown]
  - Depression [Unknown]
  - Joint swelling [Unknown]
  - Chest pain [Unknown]
  - Asthenia [Unknown]
  - Dehydration [Unknown]
  - Tinnitus [Unknown]
  - Hypoaesthesia [Unknown]
  - Gout [Unknown]
  - Rash vesicular [Unknown]
  - Pruritus [Unknown]
  - Skin exfoliation [Unknown]
